FAERS Safety Report 13383426 (Version 1)
Quarter: 2017Q1

REPORT INFORMATION
  Report Type: Spontaneous
  Country: US (occurrence: US)
  Receive Date: 20170329
  Receipt Date: 20170329
  Transmission Date: 20170429
  Serious: Yes (Other)
  Sender: FDA-Public Use
  Company Number: US-SAOL THERAPEUTICS-0700855764

PATIENT
  Age: 43 Year
  Sex: Female

DRUGS (3)
  1. BACLOFEN. [Suspect]
     Active Substance: BACLOFEN
     Indication: MUSCLE SPASTICITY
     Dosage: 500 ?G, \DAY
     Route: 037
  2. BACLOFEN. [Suspect]
     Active Substance: BACLOFEN
     Indication: MUSCLE SPASTICITY
     Route: 037
  3. BACLOFEN. [Suspect]
     Active Substance: BACLOFEN
     Dosage: 700 ?G, \DAY
     Dates: start: 20150203

REACTIONS (6)
  - Fall [Unknown]
  - Cerebrospinal fluid leakage [Unknown]
  - Therapy non-responder [Unknown]
  - Muscle spasticity [Unknown]
  - Implant site cellulitis [Unknown]
  - Device kink [Unknown]

NARRATIVE: CASE EVENT DATE: 20140204
